FAERS Safety Report 23242924 (Version 1)
Quarter: 2023Q4

REPORT INFORMATION
  Report Type: Spontaneous
  Country: US (occurrence: US)
  Receive Date: 20231129
  Receipt Date: 20231129
  Transmission Date: 20240110
  Serious: No
  Sender: FDA-Public Use
  Company Number: US-GLAXOSMITHKLINE-USCH2023055938

PATIENT

DRUGS (2)
  1. FLONASE NIGHTTIME ALLERGY RELIEF [Suspect]
     Active Substance: TRIPROLIDINE HYDROCHLORIDE
     Indication: Paranasal sinus discomfort
     Dosage: UNK
  2. FLONASE NIGHTTIME ALLERGY RELIEF [Suspect]
     Active Substance: TRIPROLIDINE HYDROCHLORIDE
     Indication: Rhinorrhoea

REACTIONS (2)
  - Drug effective for unapproved indication [Unknown]
  - Product use in unapproved indication [Unknown]
